FAERS Safety Report 6272499-X (Version None)
Quarter: 2009Q3

REPORT INFORMATION
  Report Type: 
  Country: None (occurrence: None)
  Receive Date: 20090717
  Receipt Date: 20090714
  Transmission Date: 20100115
  Serious: Yes (Hospitalization)
  Sender: FDA-Public Use
  Company Number: DE-BRISTOL-MYERS SQUIBB COMPANY-14704829

PATIENT
  Age: 54 Year
  Sex: Male

DRUGS (3)
  1. CETUXIMAB [Suspect]
     Indication: NON-SMALL CELL LUNG CANCER
     Dosage: CETUXIMAB 2 MG/ML.RECENT INFUSION:01JUL09
     Route: 042
     Dates: start: 20090526
  2. CARBOPLATIN [Suspect]
     Indication: NON-SMALL CELL LUNG CANCER
     Dosage: 1 DF=AUC5.RECENT INFUSION:23JUN09
     Route: 042
     Dates: start: 20090526
  3. GEMCITABINE [Suspect]
     Indication: NON-SMALL CELL LUNG CANCER
     Dosage: RECENT INFUSION:23JUN09
     Route: 042
     Dates: start: 20090526

REACTIONS (2)
  - ANAEMIA [None]
  - THROMBOCYTOPENIA [None]
